FAERS Safety Report 6843008-9 (Version None)
Quarter: 2010Q3

REPORT INFORMATION
  Report Type: 
  Country: None (occurrence: None)
  Receive Date: 20100709
  Receipt Date: 20100623
  Transmission Date: 20110219
  Serious: Yes (Hospitalization)
  Sender: FDA-Public Use
  Company Number: LEO-2010-00482

PATIENT
  Age: 86 Year
  Sex: Female
  Weight: 68 kg

DRUGS (4)
  1. INNOHEP [Suspect]
     Indication: PHLEBITIS
     Dosage: (14000 IU), SUBCUTANEOUS
     Route: 058
     Dates: start: 20100126, end: 20100131
  2. PREDNISOLONE [Concomitant]
  3. BISOPROLOL FUMARATE [Concomitant]
  4. ENBREL [Concomitant]

REACTIONS (3)
  - COMPARTMENT SYNDROME [None]
  - HAEMATOMA [None]
  - SKIN GRAFT [None]
